FAERS Safety Report 22171700 (Version 2)
Quarter: 2023Q2

REPORT INFORMATION
  Report Type: Report from Study
  Country: AT (occurrence: AT)
  Receive Date: 20230404
  Receipt Date: 20230524
  Transmission Date: 20230722
  Serious: Yes (Hospitalization)
  Sender: FDA-Public Use
  Company Number: AT-BIOGEN-2023BI01196500

PATIENT
  Age: 56 Year
  Sex: Female

DRUGS (6)
  1. TYSABRI [Suspect]
     Active Substance: NATALIZUMAB
     Indication: Relapsing-remitting multiple sclerosis
     Route: 050
     Dates: start: 20120802
  2. LEVOTHYROXINE SODIUM [Concomitant]
     Active Substance: LEVOTHYROXINE SODIUM
     Indication: Product used for unknown indication
     Route: 050
  3. PANTOPRAZOLE SODIUM [Concomitant]
     Active Substance: PANTOPRAZOLE SODIUM
     Indication: Product used for unknown indication
     Route: 050
  4. ROSUVASTATIN [Concomitant]
     Active Substance: ROSUVASTATIN
     Indication: Product used for unknown indication
     Route: 050
  5. Oleovit (D3) [Concomitant]
     Indication: Product used for unknown indication
     Route: 050
  6. TRICOR [Concomitant]
     Active Substance: FENOFIBRATE
     Indication: Product used for unknown indication
     Route: 050

REACTIONS (2)
  - Escherichia sepsis [Recovered/Resolved]
  - Neurogenic bladder [Unknown]

NARRATIVE: CASE EVENT DATE: 20230224
